FAERS Safety Report 16368401 (Version 1)
Quarter: 2019Q2

REPORT INFORMATION
  Report Type: Spontaneous
  Country: TH (occurrence: TH)
  Receive Date: 20190529
  Receipt Date: 20190529
  Transmission Date: 20190711
  Serious: Yes (Disabling, Other)
  Sender: FDA-Public Use
  Company Number: TH-APOTEX-2019AP008929

PATIENT
  Age: 3 Year
  Sex: Male
  Weight: 17 kg

DRUGS (1)
  1. ALKERAN [Suspect]
     Active Substance: MELPHALAN
     Indication: RETINOBLASTOMA
     Dosage: 5 MG, Q.M.T.
     Route: 013
     Dates: start: 20100302, end: 20100511

REACTIONS (1)
  - Retinal ischaemia [Recovering/Resolving]

NARRATIVE: CASE EVENT DATE: 20121016
